FAERS Safety Report 8595388-4 (Version None)
Quarter: 2012Q3

REPORT INFORMATION
  Report Type: 
  Country: None (occurrence: None)
  Receive Date: 20120815
  Receipt Date: 20120710
  Transmission Date: 20120928
  Serious: Yes (Hospitalization)
  Sender: FDA-Public Use
  Company Number: US-BRISTOL-MYERS SQUIBB COMPANY-16567463

PATIENT
  Age: 52 Year
  Sex: Female

DRUGS (1)
  1. ONGLYZA [Suspect]
     Indication: TYPE 2 DIABETES MELLITUS
     Dosage: STARTED 2 YRS AGO
     Route: 048
     Dates: start: 20100730, end: 20120401

REACTIONS (1)
  - PANCREATITIS [None]
